FAERS Safety Report 8095351-6 (Version None)
Quarter: 2012Q1

REPORT INFORMATION
  Report Type: 
  Country: None (occurrence: None)
  Receive Date: 20120131
  Receipt Date: 20120120
  Transmission Date: 20120608
  Serious: Yes (Hospitalization)
  Sender: FDA-Public Use
  Company Number: US-BAYER-2011-122080

PATIENT
  Age: 46 Year
  Sex: Female

DRUGS (5)
  1. YAZ [Suspect]
     Indication: ACNE
     Dosage: UNK
     Dates: start: 20070218, end: 20071217
  2. DROSPIRENONE AND ETHINYL ESTRADIOL [Suspect]
  3. YAZ [Suspect]
     Dosage: UNK
     Dates: start: 20080113, end: 20081214
  4. YAZ [Suspect]
     Dosage: UNK
     Dates: start: 20090110, end: 20091015
  5. YASMIN [Suspect]
     Indication: ACNE

REACTIONS (5)
  - CEREBROVASCULAR ACCIDENT [None]
  - PAIN [None]
  - DYSARTHRIA [None]
  - MUSCULAR WEAKNESS [None]
  - INJURY [None]
